FAERS Safety Report 11320081 (Version 3)
Quarter: 2015Q3

REPORT INFORMATION
  Report Type: Report from Study
  Country: BR (occurrence: BR)
  Receive Date: 20150729
  Receipt Date: 20150825
  Transmission Date: 20151125
  Serious: Yes (Hospitalization, Other)
  Sender: FDA-Public Use
  Company Number: PHHY2015BR089204

PATIENT
  Sex: Female
  Weight: 50 kg

DRUGS (2)
  1. SPIRIVA [Suspect]
     Active Substance: TIOTROPIUM BROMIDE MONOHYDRATE
     Indication: LUNG DISORDER
     Dosage: 2.5 OT, QD
     Route: 055
  2. ONBREZ BREEZHALER [Suspect]
     Active Substance: INDACATEROL
     Indication: LUNG DISORDER
     Dosage: 150 MG, UNK
     Route: 055

REACTIONS (5)
  - Emphysema [Recovering/Resolving]
  - Mediastinitis [Recovering/Resolving]
  - Product use issue [Unknown]
  - Bronchial injury [Recovering/Resolving]
  - Cough [Recovering/Resolving]
